FAERS Safety Report 6684059-7 (Version None)
Quarter: 2010Q2

REPORT INFORMATION
  Report Type: 
  Country: None (occurrence: None)
  Receive Date: 20100416
  Receipt Date: 20100401
  Transmission Date: 20101027
  Serious: Yes (Hospitalization)
  Sender: FDA-Public Use
  Company Number: DE-MYLANLABS-2010S1004953

PATIENT
  Age: 17 Month
  Sex: Male
  Weight: 12 kg

DRUGS (1)
  1. DOPADURA C [Suspect]
     Indication: DRUG USE FOR UNKNOWN INDICATION
     Route: 048
     Dates: start: 20100323, end: 20100323

REACTIONS (2)
  - ACCIDENTAL DRUG INTAKE BY CHILD [None]
  - VOMITING [None]
